FAERS Safety Report 6819263-8 (Version None)
Quarter: 2010Q3

REPORT INFORMATION
  Report Type: 
  Country: None (occurrence: None)
  Receive Date: 20100707
  Receipt Date: 20100624
  Transmission Date: 20110219
  Serious: Yes (Hospitalization, Other)
  Sender: FDA-Public Use
  Company Number: US-ELI_LILLY_AND_COMPANY-US201006006812

PATIENT
  Sex: Female

DRUGS (15)
  1. FORTEO [Suspect]
     Indication: OSTEOPOROSIS
     Dosage: 20 UG, DAILY (1/D)
     Dates: start: 20100226, end: 20100614
  2. LUTEIN [Concomitant]
  3. SINGULAIR [Concomitant]
  4. CLARINEX [Concomitant]
  5. LOVAZA [Concomitant]
  6. PATANOL [Concomitant]
  7. HYDROCHLOROTHIAZIDE [Concomitant]
  8. ADVAIR DISKUS 100/50 [Concomitant]
  9. FLONASE [Concomitant]
  10. MULTI-VITAMIN [Concomitant]
  11. TYLENOL (CAPLET) [Concomitant]
  12. CALCIUM CARBONATE [Concomitant]
  13. MACROBID [Concomitant]
  14. MIRALAX [Concomitant]
  15. PROVENTIL /00139501/ [Concomitant]

REACTIONS (4)
  - CARCINOID TUMOUR PULMONARY [None]
  - MUSCULOSKELETAL PAIN [None]
  - NON-CARDIAC CHEST PAIN [None]
  - PLEURISY [None]
